FAERS Safety Report 11820159 (Version 6)
Quarter: 2016Q3

REPORT INFORMATION
  Report Type: Spontaneous
  Country: GB (occurrence: GB)
  Receive Date: 20151210
  Receipt Date: 20160729
  Transmission Date: 20161109
  Serious: Yes (Life-Threatening, Hospitalization, Other)
  Sender: FDA-Public Use
  Company Number: GB-ACCORD-036006

PATIENT
  Age: 52 Year
  Sex: Male

DRUGS (14)
  1. GLYCERYL TRINITRATE [Concomitant]
     Active Substance: NITROGLYCERIN
     Dates: start: 20131008
  2. CODEINE [Concomitant]
     Active Substance: CODEINE
     Dosage: QDS PRN
     Route: 048
     Dates: start: 20140416
  3. CLOPIDOGREL [Suspect]
     Active Substance: CLOPIDOGREL BISULFATE
     Indication: PRODUCT USED FOR UNKNOWN INDICATION
     Dates: start: 20131008
  4. PARACETAMOL [Suspect]
     Active Substance: ACETAMINOPHEN
     Indication: PRODUCT USED FOR UNKNOWN INDICATION
     Dates: start: 20140510, end: 20140521
  5. AMLODIPINE [Suspect]
     Active Substance: AMLODIPINE BESYLATE
     Dosage: STRENGTH : 10 MG.?DOSE WAS 10 MG X 50
     Route: 065
     Dates: start: 20141201, end: 20141201
  6. BISOPROLOL [Suspect]
     Active Substance: BISOPROLOL
     Dosage: STRENGTH : 2.5 MG.?DOSE WAS 2.5 MG X 16
     Route: 065
     Dates: start: 20141201, end: 20141201
  7. IBUPROFEN. [Suspect]
     Active Substance: IBUPROFEN
     Dosage: STRENGTH: 200 MG
     Route: 065
     Dates: start: 20141201, end: 20141201
  8. ATORVASTATIN [Concomitant]
     Active Substance: ATORVASTATIN
     Dates: start: 20140110, end: 20140330
  9. TRAMADOL. [Concomitant]
     Active Substance: TRAMADOL
     Dosage: TRAMADOL 50-100 MG ORAL Q4H PRN
     Dates: start: 20140416
  10. RAMIPRIL. [Suspect]
     Active Substance: RAMIPRIL
     Dosage: STRENGTH : 2.5 MG?DOSE TAKEN WAS 2.5 MG X 56
     Route: 065
     Dates: start: 20141201, end: 20141201
  11. CO-AMOXICLAV [Concomitant]
     Active Substance: AMOXICILLIN\CLAVULANIC ACID
     Dosage: 625 MG TDS
     Route: 048
     Dates: start: 20140418, end: 20140423
  12. ACETYLSALICYLIC ACID [Suspect]
     Active Substance: ASPIRIN
     Dosage: STRENGTH : 75 MG
     Dates: start: 20141201, end: 20141201
  13. FLUOXETINE [Suspect]
     Active Substance: FLUOXETINE HYDROCHLORIDE
     Dosage: STRENGTH : 20 MG.?DOSE WAS 20 MG X 40
     Route: 048
     Dates: start: 20141201, end: 20141201
  14. ANADIN [Suspect]
     Active Substance: IBUPROFEN
     Indication: PRODUCT USED FOR UNKNOWN INDICATION
     Dosage: 200 MG X 16
     Route: 065

REACTIONS (6)
  - Suicide attempt [Recovered/Resolved]
  - Syncope [Recovered/Resolved]
  - Bradycardia [Recovered/Resolved]
  - Vomiting [Recovered/Resolved]
  - Intentional overdose [Recovered/Resolved]
  - Depressed mood [Not Recovered/Not Resolved]

NARRATIVE: CASE EVENT DATE: 20141201
